FAERS Safety Report 20759742 (Version 1)
Quarter: 2022Q2

REPORT INFORMATION
  Report Type: Spontaneous
  Country: US (occurrence: US)
  Receive Date: 20220427
  Receipt Date: 20220427
  Transmission Date: 20220721
  Serious: No
  Sender: FDA-Public Use
  Company Number: US-PFIZER INC-202101677666

PATIENT
  Age: 54 Year
  Sex: Male

DRUGS (2)
  1. EPLERENONE [Suspect]
     Active Substance: EPLERENONE
     Dosage: 25 MG, DAILY
     Route: 048
  2. INSPRA [Suspect]
     Active Substance: EPLERENONE
     Dosage: 25 MG, UNK

REACTIONS (1)
  - Gynaecomastia [Unknown]
